FAERS Safety Report 11074857 (Version 1)
Quarter: 2015Q2

REPORT INFORMATION
  Report Type: Spontaneous
  Country: GB (occurrence: GB)
  Receive Date: 20150429
  Receipt Date: 20150429
  Transmission Date: 20150821
  Serious: Yes (Death, Other)
  Sender: FDA-Public Use
  Company Number: GB-CIPLA LTD.-2015GB03346

PATIENT

DRUGS (10)
  1. ZIDOVUDINE. [Suspect]
     Active Substance: ZIDOVUDINE
  2. LAMIVUDINE. [Suspect]
     Active Substance: LAMIVUDINE
  3. STAVUDINE. [Suspect]
     Active Substance: STAVUDINE
  4. DELAVIRDINE [Suspect]
     Active Substance: DELAVIRDINE
  5. EFAVIRENZ [Suspect]
     Active Substance: EFAVIRENZ
     Dosage: UNK
  6. NEVIRAPINE. [Suspect]
     Active Substance: NEVIRAPINE
     Dosage: UNK
  7. TENOFOVIR DISOPROXIL FUMARATE [Suspect]
     Active Substance: TENOFOVIR DISOPROXIL FUMARATE
  8. ETRAVIRINE [Suspect]
     Active Substance: ETRAVIRINE
  9. ABACAVIR [Suspect]
     Active Substance: ABACAVIR
     Dosage: UNK
  10. DIDANOSINE. [Suspect]
     Active Substance: DIDANOSINE
     Dosage: UNK

REACTIONS (2)
  - Drug resistance [Unknown]
  - Death [Fatal]
